FAERS Safety Report 7945339-8 (Version None)
Quarter: 2011Q4

REPORT INFORMATION
  Report Type: 
  Country: None (occurrence: None)
  Receive Date: 20111129
  Receipt Date: 20110326
  Transmission Date: 20120403
  Serious: No
  Sender: FDA-Public Use
  Company Number: US-GLAXOSMITHKLINE-A0920736A

PATIENT
  Sex: Female

DRUGS (2)
  1. LITHIUM [Concomitant]
  2. BUPROPION HCL [Suspect]
     Indication: DEPRESSION
     Route: 065

REACTIONS (1)
  - DRUG INEFFECTIVE [None]
